FAERS Safety Report 11790405 (Version 1)
Quarter: 2015Q4

REPORT INFORMATION
  Report Type: Spontaneous
  Country: US (occurrence: US)
  Receive Date: 20151201
  Receipt Date: 20151201
  Transmission Date: 20160305
  Serious: Yes (Hospitalization, Other)
  Sender: FDA-Public Use
  Company Number: US-JNJFOC-20151117309

PATIENT

DRUGS (2)
  1. IBUPROFEN. [Suspect]
     Active Substance: IBUPROFEN
     Route: 048
  2. IBUPROFEN. [Suspect]
     Active Substance: IBUPROFEN
     Indication: RESPIRATORY DISORDER
     Dosage: 20?30 MG/KG TWICE DAILY (MAXIMUM 3200 MG/DAY)
     Route: 048

REACTIONS (9)
  - Gastrointestinal disorder [Unknown]
  - Drug level increased [Unknown]
  - Extra dose administered [Unknown]
  - Neutrophil count abnormal [Unknown]
  - Blood elastase [Unknown]
  - Interleukin level [Unknown]
  - Lung disorder [Unknown]
  - Off label use [Unknown]
  - Product use issue [Unknown]
